FAERS Safety Report 9823249 (Version 1)
Quarter: 2014Q1

REPORT INFORMATION
  Report Type: Spontaneous
  Country: FR (occurrence: FR)
  Receive Date: 20140116
  Receipt Date: 20140116
  Transmission Date: 20141002
  Serious: Yes (Death)
  Sender: FDA-Public Use
  Company Number: FR-WATSON-2013-24620

PATIENT
  Age: 66 Year
  Sex: Male

DRUGS (31)
  1. ZOLPIDEM [Suspect]
     Indication: INSOMNIA
     Dosage: 10 MG, UNK
     Route: 048
     Dates: start: 20120214, end: 20120318
  2. SANDIMMUN [Suspect]
     Indication: CORD BLOOD TRANSPLANT THERAPY
     Dosage: CONTINUOUS ADMINISTRATION
     Route: 042
     Dates: start: 20120123, end: 20120404
  3. VFEND [Suspect]
     Indication: ASPERGILLUS INFECTION
     Dosage: 400 MG, UNK
     Route: 042
     Dates: start: 201010, end: 20120511
  4. HEPARINE CHOAY [Suspect]
     Indication: PROPHYLAXIS
     Dosage: 7500 IU, UNK
     Route: 042
     Dates: start: 20120119, end: 20120319
  5. PLITICAN [Suspect]
     Indication: PROPHYLAXIS
     Dosage: UNK, UNKNOWN
     Route: 042
     Dates: start: 20120218, end: 20120511
  6. VIALEBEX [Suspect]
     Indication: HYPOALBUMINAEMIA
     Dosage: 20 G, UNK
     Route: 042
     Dates: start: 2009, end: 20120511
  7. METHYLPREDNISOLONE [Suspect]
     Indication: IMMUNOSUPPRESSION
     Dosage: UNK, UNKNOWN
     Route: 042
     Dates: start: 20120119, end: 20120511
  8. LEVOTHYROX [Suspect]
     Indication: HYPOTHYROIDISM
     Dosage: 150 UG
     Route: 042
     Dates: start: 20120214, end: 20120415
  9. URSOLVAN [Suspect]
     Indication: CHOLESTASIS
     Dosage: 1.5 G, UNK
     Route: 048
     Dates: start: 20120119, end: 20120511
  10. LOXEN [Suspect]
     Indication: HYPERTENSION
     Dosage: 50 MG, UNK
     Route: 048
     Dates: start: 20120221, end: 20120322
  11. INEXIUM /01479302/ [Suspect]
     Indication: GASTRODUODENAL ULCER
     Dosage: 20 MG, DAILY
     Route: 048
     Dates: start: 20120221, end: 20120405
  12. ORACILLINE /00001801/ [Suspect]
     Indication: CYTOMEGALOVIRUS INFECTION
     Dosage: 1 MIU TWICE DAILY
     Route: 048
     Dates: start: 20120222, end: 20120425
  13. BACTRIM [Suspect]
     Indication: CYTOMEGALOVIRUS INFECTION
     Dosage: 1 DF, 3/WEEK
     Route: 048
     Dates: start: 20120223, end: 20120405
  14. TIORFAN [Suspect]
     Indication: DIARRHOEA
     Dosage: 2 G, TID
     Route: 048
     Dates: start: 20120309, end: 20120317
  15. SPECIAFOLDINE [Suspect]
     Indication: PRODUCT USED FOR UNKNOWN INDICATION
     Dosage: 5 MG, DAILY
     Route: 065
     Dates: start: 20120313, end: 20120322
  16. ROVALCYTE [Suspect]
     Indication: CYTOMEGALOVIRUS INFECTION
     Dosage: 900 MG, UNK
     Route: 048
     Dates: start: 20120129, end: 20120316
  17. EFFEXOR [Suspect]
     Indication: ANXIETY
     Dosage: 75 MG, DAILY
     Route: 048
     Dates: start: 20120224
  18. TRANXENE [Suspect]
     Indication: ANXIETY
     Dosage: AS NEEDED
     Route: 048
     Dates: start: 20120123, end: 20120306
  19. FUROSEMIDE RENAUDIN [Suspect]
     Indication: OEDEMA PERIPHERAL
     Dosage: AS NEEDED
     Route: 048
  20. CELLCEPT /01275102/ [Suspect]
     Indication: CORD BLOOD TRANSPLANT THERAPY
     Dosage: 500 MG, BID
     Route: 042
  21. VIDAZA [Concomitant]
     Indication: PRODUCT USED FOR UNKNOWN INDICATION
     Dosage: UNK, UNKNOWN
     Route: 065
  22. FOSCAVIR [Concomitant]
     Indication: PRODUCT USED FOR UNKNOWN INDICATION
     Dosage: UNK, UNKNOWN
     Route: 065
  23. IDARUBICIN [Concomitant]
     Indication: PRODUCT USED FOR UNKNOWN INDICATION
     Dosage: UNK, UNKNOWN
     Route: 065
  24. ARACYTINE [Concomitant]
     Indication: PRODUCT USED FOR UNKNOWN INDICATION
     Dosage: UNK, UNKNOWN
     Route: 065
  25. FORTUM                             /00559701/ [Concomitant]
     Indication: PRODUCT USED FOR UNKNOWN INDICATION
     Dosage: UNK, UNKNOWN
     Route: 065
  26. AMIKLIN                            /00391001/ [Concomitant]
     Indication: PRODUCT USED FOR UNKNOWN INDICATION
     Dosage: UNK, UNKNOWN
     Route: 065
  27. VANCOMYCINE [Concomitant]
     Indication: PRODUCT USED FOR UNKNOWN INDICATION
     Dosage: UNK, UNKNOWN
     Route: 065
  28. MABTHERA [Concomitant]
     Indication: PRODUCT USED FOR UNKNOWN INDICATION
     Dosage: UNK, UNKNOWN
     Route: 065
  29. CYMEVAN [Concomitant]
     Indication: PRODUCT USED FOR UNKNOWN INDICATION
     Dosage: UNK, UNKNOWN
     Route: 065
  30. SOLIRIS [Concomitant]
     Indication: PRODUCT USED FOR UNKNOWN INDICATION
     Dosage: UNK, UNKNOWN
     Route: 065
  31. SANDOGLOBULINE [Concomitant]
     Indication: PRODUCT USED FOR UNKNOWN INDICATION
     Dosage: UNK, UNKNOWN
     Route: 065

REACTIONS (1)
  - Thrombotic microangiopathy [Fatal]
